FAERS Safety Report 22350852 (Version 2)
Quarter: 2024Q2

REPORT INFORMATION
  Report Type: Spontaneous
  Country: IT (occurrence: IT)
  Receive Date: 20230522
  Receipt Date: 20240506
  Transmission Date: 20240716
  Serious: Yes (Other)
  Sender: FDA-Public Use
  Company Number: IT-ASTELLAS-2022US042941

PATIENT
  Age: 65 Year
  Sex: Male

DRUGS (2)
  1. LEUPROLIDE ACETATE [Suspect]
     Active Substance: ISOPROPYL ALCOHOL\LEUPROLIDE ACETATE
     Indication: Prostate cancer
     Route: 065
  2. ENZALUTAMIDE [Suspect]
     Active Substance: ENZALUTAMIDE
     Indication: Prostate cancer
     Route: 065

REACTIONS (9)
  - Follicular cystitis [Unknown]
  - Escherichia urinary tract infection [Unknown]
  - Pelvic pain [Unknown]
  - Lymphadenopathy [Unknown]
  - Fistula [Unknown]
  - Suprapubic pain [Unknown]
  - Urinary tract infection [Unknown]
  - Prostate cancer [Unknown]
  - Bladder transitional cell carcinoma [Unknown]
